FAERS Safety Report 4915409-7 (Version None)
Quarter: 2006Q1

REPORT INFORMATION
  Report Type: 
  Country: None (occurrence: None)
  Receive Date: 20060217
  Receipt Date: 20050829
  Transmission Date: 20060701
  Serious: Yes (Hospitalization)
  Sender: FDA-Public Use
  Company Number: US-MERCK-0508USA04644

PATIENT
  Age: 69 Year
  Sex: Female

DRUGS (1)
  1. VIOXX [Suspect]
     Route: 048
     Dates: start: 20000101, end: 20040101

REACTIONS (24)
  - CAROTID ARTERY STENOSIS [None]
  - CEREBRAL ISCHAEMIA [None]
  - CEREBROVASCULAR ACCIDENT [None]
  - DYSLIPIDAEMIA [None]
  - DYSURIA [None]
  - ESSENTIAL HYPERTENSION [None]
  - FATIGUE [None]
  - HYPOTENSION [None]
  - HYPOTHYROIDISM [None]
  - IRRITABLE BOWEL SYNDROME [None]
  - LUNG DISORDER [None]
  - MAJOR DEPRESSION [None]
  - MALAISE [None]
  - MIXED HYPERLIPIDAEMIA [None]
  - OSTEOARTHRITIS [None]
  - PERIARTHRITIS [None]
  - POLLAKIURIA [None]
  - ROTATOR CUFF SYNDROME [None]
  - TRANSIENT ISCHAEMIC ATTACK [None]
  - URINARY INCONTINENCE [None]
  - VENTRICULAR DYSFUNCTION [None]
  - VENTRICULAR HYPERTROPHY [None]
  - VERTIGO POSITIONAL [None]
  - VIRAL INFECTION [None]
